FAERS Safety Report 4307650-1 (Version None)
Quarter: 2004Q1

REPORT INFORMATION
  Report Type: 
  Country: None (occurrence: None)
  Receive Date: 20040225
  Receipt Date: 20030702
  Transmission Date: 20041129
  Serious: Yes (Other)
  Sender: FDA-Public Use
  Company Number: WAES 0307USA00296

PATIENT
  Age: 62 Year
  Sex: Male
  Weight: 92.9874 kg

DRUGS (7)
  1. ZOCOR [Suspect]
     Indication: BLOOD CHOLESTEROL INCREASED
     Dosage: 20 MG/DAILY/PO
     Route: 048
     Dates: start: 20030624, end: 20030628
  2. ZOCOR [Suspect]
     Indication: DYSLIPIDAEMIA
     Dosage: 20 MG/DAILY/PO
     Route: 048
     Dates: start: 20030624, end: 20030628
  3. ALAVERT [Concomitant]
  4. FOLTX [Concomitant]
  5. PRINIVIL [Concomitant]
  6. VIAGRA [Concomitant]
  7. ASPIRIN [Concomitant]

REACTIONS (2)
  - BRONCHITIS [None]
  - HYPERSENSITIVITY [None]
